FAERS Safety Report 5579354-9 (Version None)
Quarter: 2008Q1

REPORT INFORMATION
  Report Type: 
  Country: None (occurrence: None)
  Receive Date: 20080102
  Receipt Date: 20071227
  Transmission Date: 20080703
  Serious: Yes (Hospitalization)
  Sender: FDA-Public Use
  Company Number: GB-TEVA-164848ISR

PATIENT
  Age: 41 Year
  Sex: Female
  Weight: 68 kg

DRUGS (1)
  1. CIPROFLOXACIN HCL [Suspect]
     Indication: URINARY TRACT INFECTION
     Route: 048
     Dates: start: 20070110, end: 20070114

REACTIONS (10)
  - ARTHRALGIA [None]
  - ARTHRITIS REACTIVE [None]
  - BACK PAIN [None]
  - BLINDNESS [None]
  - EYE DISCHARGE [None]
  - EYE INFLAMMATION [None]
  - HYPERSENSITIVITY [None]
  - OSTEITIS [None]
  - PAIN IN EXTREMITY [None]
  - SWELLING [None]
